FAERS Safety Report 19913353 (Version 1)
Quarter: 2021Q4

REPORT INFORMATION
  Report Type: Spontaneous
  Country: CA (occurrence: CA)
  Receive Date: 20211004
  Receipt Date: 20211004
  Transmission Date: 20220303
  Serious: Yes (Death)
  Sender: FDA-Public Use
  Company Number: CA-TEVA-2021-CA-1959926

PATIENT
  Age: 43 Year
  Sex: Male

DRUGS (2)
  1. HALOPERIDOL [Suspect]
     Active Substance: HALOPERIDOL
     Indication: Psychotic disorder
     Route: 065
  2. PALIPERIDONE [Suspect]
     Active Substance: PALIPERIDONE
     Indication: Schizophrenia
     Route: 065

REACTIONS (15)
  - Abnormal behaviour [Fatal]
  - Arrhythmia [Fatal]
  - Asthenia [Fatal]
  - Cardiac disorder [Fatal]
  - Condition aggravated [Fatal]
  - Dehydration [Fatal]
  - Exposure to extreme temperature [Fatal]
  - Food refusal [Fatal]
  - Hyperhidrosis [Fatal]
  - Hyperthermia [Fatal]
  - Pain in extremity [Fatal]
  - Product dose omission issue [Fatal]
  - Salivary hypersecretion [Fatal]
  - Temperature regulation disorder [Fatal]
  - Vasodilatation [Fatal]
